FAERS Safety Report 15704696 (Version 9)
Quarter: 2021Q2

REPORT INFORMATION
  Report Type: Report from Study
  Country: DE (occurrence: DE)
  Receive Date: 20181210
  Receipt Date: 20210609
  Transmission Date: 20210716
  Serious: Yes (Hospitalization)
  Sender: FDA-Public Use
  Company Number: PHHO2018DE012848

PATIENT
  Age: 71 Year
  Sex: Male
  Weight: 81 kg

DRUGS (4)
  1. PDR001 [Suspect]
     Active Substance: SPARTALIZUMAB
     Indication: METASTATIC MALIGNANT MELANOMA
     Dosage: 400 MG, Q4W
     Route: 042
     Dates: start: 20181105, end: 20181105
  2. ZOPICLONE [Concomitant]
     Active Substance: ZOPICLONE
     Indication: GENERAL PHYSICAL CONDITION
     Dosage: UNK
     Route: 065
     Dates: start: 20181130, end: 20190108
  3. POLYHEXANIDE [Concomitant]
     Active Substance: POLIHEXANIDE
     Indication: WOUND INFECTION
     Dosage: UNK
     Route: 065
     Dates: start: 20181120, end: 20181125
  4. ACZ885 [Suspect]
     Active Substance: CANAKINUMAB
     Indication: METASTATIC MALIGNANT MELANOMA
     Dosage: 300 MG, Q4W
     Route: 058
     Dates: start: 20181105

REACTIONS (1)
  - Gastrooesophageal reflux disease [Not Recovered/Not Resolved]

NARRATIVE: CASE EVENT DATE: 20181130
